FAERS Safety Report 25824870 (Version 2)
Quarter: 2025Q3

REPORT INFORMATION
  Report Type: Spontaneous
  Country: EU (occurrence: EU)
  Receive Date: 20250919
  Receipt Date: 20250923
  Transmission Date: 20251020
  Serious: Yes (Other)
  Sender: PFIZER
  Company Number: EU-MLMSERVICE-20250905-PI633022-00152-1

PATIENT
  Age: 62 Year
  Sex: Male

DRUGS (12)
  1. LEUCOVORIN CALCIUM [Suspect]
     Active Substance: LEUCOVORIN CALCIUM
     Indication: Rectal adenocarcinoma
     Dates: start: 202204, end: 202312
  2. LEUCOVORIN CALCIUM [Suspect]
     Active Substance: LEUCOVORIN CALCIUM
     Indication: Metastases to liver
  3. LEUCOVORIN CALCIUM [Suspect]
     Active Substance: LEUCOVORIN CALCIUM
     Indication: Metastases to lymph nodes
  4. FLUOROURACIL [Suspect]
     Active Substance: FLUOROURACIL
     Indication: Rectal adenocarcinoma
     Dates: start: 202204, end: 202312
  5. FLUOROURACIL [Suspect]
     Active Substance: FLUOROURACIL
     Indication: Metastases to liver
  6. FLUOROURACIL [Suspect]
     Active Substance: FLUOROURACIL
     Indication: Metastases to lymph nodes
  7. OXALIPLATIN [Suspect]
     Active Substance: OXALIPLATIN
     Indication: Rectal adenocarcinoma
     Dates: start: 202204, end: 202312
  8. OXALIPLATIN [Suspect]
     Active Substance: OXALIPLATIN
     Indication: Metastases to liver
  9. OXALIPLATIN [Suspect]
     Active Substance: OXALIPLATIN
     Indication: Metastases to lymph nodes
  10. PANITUMUMAB [Suspect]
     Active Substance: PANITUMUMAB
     Indication: Rectal adenocarcinoma
     Dates: start: 202204, end: 202312
  11. PANITUMUMAB [Suspect]
     Active Substance: PANITUMUMAB
     Indication: Metastases to liver
  12. PANITUMUMAB [Suspect]
     Active Substance: PANITUMUMAB
     Indication: Metastases to lymph nodes

REACTIONS (7)
  - Neuropathy peripheral [Unknown]
  - Malignant neoplasm progression [Unknown]
  - Rectal adenocarcinoma [Unknown]
  - Metastases to liver [Unknown]
  - Metastases to lymph nodes [Unknown]
  - Rash [Unknown]
  - Drug resistance [Unknown]
